FAERS Safety Report 6020809-0 (Version None)
Quarter: 2008Q4

REPORT INFORMATION
  Report Type: 
  Country: None (occurrence: None)
  Receive Date: 20081229
  Receipt Date: 20081217
  Transmission Date: 20090506
  Serious: Yes (Other)
  Sender: FDA-Public Use
  Company Number: HK-JNJFOC-20081204491

PATIENT
  Age: 28 Year
  Sex: Female

DRUGS (3)
  1. HALOPERIDOL [Suspect]
     Indication: SCHIZOPHRENIA
     Route: 065
  2. CLOZAPINE [Suspect]
     Indication: SCHIZOPHRENIA
     Route: 065
  3. OLANZAPINE [Suspect]
     Indication: SCHIZOPHRENIA
     Route: 065

REACTIONS (6)
  - BRADYPHRENIA [None]
  - DELUSION [None]
  - DRUG INEFFECTIVE [None]
  - HALLUCINATION [None]
  - HYPOKINESIA [None]
  - WEIGHT INCREASED [None]
